APPROVED DRUG PRODUCT: RISPERIDONE
Active Ingredient: RISPERIDONE
Strength: 4MG
Dosage Form/Route: TABLET;ORAL
Application: A205104 | Product #006 | TE Code: AB
Applicant: IPCA LABORATORIES LTD
Approved: Jun 26, 2024 | RLD: No | RS: No | Type: RX